FAERS Safety Report 9890708 (Version 2)
Quarter: 2014Q1

REPORT INFORMATION
  Report Type: Spontaneous
  Country: US (occurrence: US)
  Receive Date: 20140212
  Receipt Date: 20140224
  Transmission Date: 20141002
  Serious: Yes (Other)
  Sender: FDA-Public Use
  Company Number: US-SA-2014SA017016

PATIENT
  Age: 53 Year
  Sex: Male

DRUGS (3)
  1. LANTUS SOLOSTAR [Suspect]
     Indication: TYPE 1 DIABETES MELLITUS
     Dosage: DOSE:25 UNIT(S)
     Route: 058
  2. SOLOSTAR [Suspect]
     Indication: TYPE 1 DIABETES MELLITUS
  3. HUMALOG [Concomitant]

REACTIONS (4)
  - Blindness [Unknown]
  - Ill-defined disorder [Unknown]
  - Dry mouth [Unknown]
  - Incorrect dose administered [Unknown]
